FAERS Safety Report 5982151-3 (Version None)
Quarter: 2008Q4

REPORT INFORMATION
  Report Type: 
  Country: None (occurrence: None)
  Receive Date: 20081203
  Receipt Date: 20081120
  Transmission Date: 20090506
  Serious: Yes (Life-Threatening, Hospitalization)
  Sender: FDA-Public Use
  Company Number: 2008AL011909

PATIENT
  Age: 86 Year
  Sex: Male

DRUGS (22)
  1. SERTRALINE HYDROCHLORIDE       (BASE) (AELLC) [Suspect]
     Dosage: 75 MG;QD;PO
     Route: 048
  2. IPRATROPIUM BROMIDE [Suspect]
     Dosage: PRN
  3. CYPROHEPTADINE HYDROCHLORIDE SYRUP USP, [Suspect]
     Dosage: 4 MG;QD; PO
     Route: 048
  4. FAMOTIDINE [Suspect]
     Dosage: 40 MG;QD;PO
     Route: 048
  5. ISOSORBIDE MONONITRATE [Suspect]
     Dosage: 15 MG;QD;PO
     Route: 048
  6. METOCLOPRAMIDE TABLETS [Suspect]
     Dosage: 10 MG;QID;PO
     Route: 048
  7. ACETYLSALICYLIC ACID SRT [Concomitant]
  8. CLOPIDOGREL [Concomitant]
  9. FLUNISOLIDE [Concomitant]
  10. ALBUTEROL SULFATE [Concomitant]
  11. MOMETASONE FUROATE [Concomitant]
  12. DENEZEPIL [Concomitant]
  13. FUROSEMIDE [Concomitant]
  14. LISINOPRIL [Concomitant]
  15. MAGNESIUM GLUCONATE [Concomitant]
  16. NITROGLYCERIN [Concomitant]
  17. SIMVASTATIN [Concomitant]
  18. MODAFINIL [Concomitant]
  19. LEVETIRACETAM [Concomitant]
  20. ISOPHANE INSULIN [Concomitant]
  21. INSULIN ASPART [Concomitant]
  22. METOPROLOL TARTRATE [Concomitant]

REACTIONS (7)
  - ACUTE MYOCARDIAL INFARCTION [None]
  - ANOREXIA [None]
  - DEHYDRATION [None]
  - DEPRESSION [None]
  - HYPOPHAGIA [None]
  - NAUSEA [None]
  - RENAL IMPAIRMENT [None]
